FAERS Safety Report 25359885 (Version 1)
Quarter: 2025Q2

REPORT INFORMATION
  Report Type: Report from Study
  Country: IT (occurrence: IT)
  Receive Date: 20250526
  Receipt Date: 20250526
  Transmission Date: 20250717
  Serious: Yes (Other)
  Sender: ABBVIE
  Company Number: IT-JNJFOC-20250526196

PATIENT

DRUGS (3)
  1. IBRUTINIB [Suspect]
     Active Substance: IBRUTINIB
     Indication: Chronic lymphocytic leukaemia
     Dosage: 420 MG/DAY
     Route: 048
  2. VENETOCLAX [Suspect]
     Active Substance: VENETOCLAX
     Indication: Chronic lymphocytic leukaemia
     Dosage: 400 MG/DAY  VENETOCLAX RAMP-UP 20 MG TO 400 MG/DAY OVER 5 WEEKS
     Route: 048
  3. VENETOCLAX [Suspect]
     Active Substance: VENETOCLAX
     Indication: Chronic lymphocytic leukaemia
     Dosage: 400 MG/DAY  VENETOCLAX RAMP-UP 20 MG TO 400 MG/DAY OVER 5 WEEKS
     Route: 048

REACTIONS (8)
  - Hypertension [Unknown]
  - Arthralgia [Unknown]
  - Nausea [Unknown]
  - Infection [Unknown]
  - Haemorrhage [Unknown]
  - Diarrhoea [Unknown]
  - Neutropenia [Unknown]
  - Thrombocytopenia [Unknown]
